FAERS Safety Report 20533773 (Version 1)
Quarter: 2022Q1

REPORT INFORMATION
  Report Type: Report from Study
  Country: IT (occurrence: IT)
  Receive Date: 20220301
  Receipt Date: 20220301
  Transmission Date: 20220423
  Serious: Yes (Death, Hospitalization)
  Sender: FDA-Public Use
  Company Number: IT-ABBVIE-22P-083-4292158-00

PATIENT
  Sex: Female

DRUGS (3)
  1. VENETOCLAX [Suspect]
     Active Substance: VENETOCLAX
     Indication: Lymphocytic leukaemia
     Route: 048
     Dates: start: 20210423
  2. NAVITOCLAX [Suspect]
     Active Substance: NAVITOCLAX
     Indication: Lymphocytic leukaemia
     Route: 048
  3. RASBURICASE [Concomitant]
     Active Substance: RASBURICASE
     Indication: Product used for unknown indication

REACTIONS (7)
  - Disease progression [Fatal]
  - Cell death [Unknown]
  - White blood cell count decreased [Unknown]
  - Blood potassium increased [Unknown]
  - Red blood cell schistocytes [Unknown]
  - Respiratory failure [Unknown]
  - Off label use [Unknown]

NARRATIVE: CASE EVENT DATE: 20210401
